FAERS Safety Report 19496893 (Version 1)
Quarter: 2021Q3

REPORT INFORMATION
  Report Type: Spontaneous
  Country: US (occurrence: US)
  Receive Date: 20210705
  Receipt Date: 20210705
  Transmission Date: 20211014
  Serious: No
  Sender: FDA-Public Use
  Company Number: None

PATIENT
  Age: 63 Year
  Sex: Female
  Weight: 99 kg

DRUGS (1)
  1. DUPIXENT [Suspect]
     Active Substance: DUPILUMAB
     Indication: ECZEMA
     Dosage: ?          QUANTITY:600 INJECTION(S);?
     Route: 058
     Dates: start: 20210630

REACTIONS (2)
  - Skin exfoliation [None]
  - Rash erythematous [None]

NARRATIVE: CASE EVENT DATE: 20210701
